FAERS Safety Report 20350171 (Version 1)
Quarter: 2022Q1

REPORT INFORMATION
  Report Type: Spontaneous
  Country: US (occurrence: US)
  Receive Date: 20220119
  Receipt Date: 20220119
  Transmission Date: 20220423
  Serious: Yes (Hospitalization, Other)
  Sender: FDA-Public Use
  Company Number: US-MYLANLABS-2022M1004174

PATIENT
  Age: 30 Year
  Sex: Female

DRUGS (8)
  1. FLUOROURACIL [Suspect]
     Active Substance: FLUOROURACIL
     Indication: Colon cancer
     Dosage: FOLFOX
     Route: 065
     Dates: start: 2019
  2. FLUOROURACIL [Suspect]
     Active Substance: FLUOROURACIL
     Indication: Spinal cord compression
  3. LEUCOVORIN [Suspect]
     Active Substance: LEUCOVORIN
     Indication: Colon cancer
     Dosage: FOLFOX
     Route: 065
     Dates: start: 2019
  4. LEUCOVORIN [Suspect]
     Active Substance: LEUCOVORIN
     Indication: Spinal cord compression
  5. OXALIPLATIN [Suspect]
     Active Substance: OXALIPLATIN
     Indication: Colon cancer
     Dosage: CYCLE, FOLFOX
     Route: 065
     Dates: start: 2019
  6. OXALIPLATIN [Suspect]
     Active Substance: OXALIPLATIN
     Indication: Spinal cord compression
  7. BEVACIZUMAB [Suspect]
     Active Substance: BEVACIZUMAB
     Indication: Colon cancer
     Dosage: UNK UNK, CYCLE
     Route: 065
     Dates: start: 2019
  8. BEVACIZUMAB [Suspect]
     Active Substance: BEVACIZUMAB
     Indication: Spinal cord compression

REACTIONS (6)
  - Oesophageal fistula [Recovering/Resolving]
  - Meningeal disorder [Recovering/Resolving]
  - Pneumocephalus [Recovering/Resolving]
  - Cerebrospinal fluid leakage [Recovered/Resolved]
  - Abscess neck [Recovered/Resolved]
  - Neuropathy peripheral [Unknown]

NARRATIVE: CASE EVENT DATE: 20200301
